FAERS Safety Report 8992746 (Version 1)
Quarter: 2013Q1

REPORT INFORMATION
  Report Type: Spontaneous
  Country: JP (occurrence: JP)
  Receive Date: 20130101
  Receipt Date: 20130101
  Transmission Date: 20140127
  Serious: Yes (Other)
  Sender: FDA-Public Use
  Company Number: JP-ROCHE-1040852

PATIENT
  Sex: Male
  Weight: 68 kg

DRUGS (5)
  1. PEGASYS [Suspect]
     Indication: CHRONIC HEPATITIS C
     Route: 058
     Dates: start: 20090113, end: 201004
  2. PEGASYS [Suspect]
     Indication: CHRONIC HEPATITIS C
     Route: 058
     Dates: start: 201004
  3. COPEGUS [Suspect]
     Indication: CHRONIC HEPATITIS C
     Route: 048
     Dates: start: 20090113, end: 201004
  4. NEO-MINOPHAGEN C [Concomitant]
     Indication: SEDATION
     Dosage: DOSAGE IS UNCERTAIN.
     Route: 042
     Dates: start: 201004
  5. URSO [Concomitant]
     Indication: SEDATION
     Dosage: DOSAGE IS UNCERTAIN.
     Route: 048
     Dates: start: 19201004

REACTIONS (4)
  - Oral lichen planus [Recovering/Resolving]
  - Lip erosion [Recovering/Resolving]
  - Cheilitis [Unknown]
  - Lip haemorrhage [Recovered/Resolved]
